FAERS Safety Report 10005004 (Version 1)
Quarter: 2014Q1

REPORT INFORMATION
  Report Type: Spontaneous
  Country: US (occurrence: US)
  Receive Date: 20140312
  Receipt Date: 20140312
  Transmission Date: 20141002
  Serious: No
  Sender: FDA-Public Use
  Company Number: US-009507513-2012SP022914

PATIENT
  Age: 1 Year
  Sex: Male
  Weight: 13.61 kg

DRUGS (1)
  1. CLARITIN CHEWABLE TABLETS [Suspect]
     Dosage: 10 MG, ONCE
     Route: 048
     Dates: start: 20120403

REACTIONS (2)
  - Overdose [Not Recovered/Not Resolved]
  - Off label use [Unknown]
